FAERS Safety Report 8995240 (Version 1)
Quarter: 2012Q4

REPORT INFORMATION
  Report Type: Spontaneous
  Country: IT (occurrence: None)
  Receive Date: 20121221
  Receipt Date: 20121221
  Transmission Date: 20130627
  Serious: Yes (Life-Threatening, Other)
  Sender: FDA-Public Use
  Company Number: VAL_01199_2012

PATIENT
  Sex: Male

DRUGS (2)
  1. METOPROLOL [Suspect]
     Indication: HYPERTENSION
     Dosage: (7 DF, total Oral)
     Route: 048
     Dates: start: 20121028, end: 20121028
  2. ACETYLSALICYLIC ACID [Suspect]
     Indication: HYPERTENSION
     Dosage: (7 DF, total Oral)
     Route: 048
     Dates: start: 20121028, end: 20121028

REACTIONS (2)
  - Bradycardia [None]
  - Drug abuse [None]
